FAERS Safety Report 6880003-8 (Version None)
Quarter: 2010Q3

REPORT INFORMATION
  Report Type: 
  Country: None (occurrence: None)
  Receive Date: 20100728
  Receipt Date: 20100721
  Transmission Date: 20110219
  Serious: Yes (Other)
  Sender: FDA-Public Use
  Company Number: PHHY2010US33192

PATIENT
  Sex: Female

DRUGS (4)
  1. RITALIN [Suspect]
     Dosage: TWICE DAILY
  2. ADDERALL 10 [Suspect]
     Dosage: 1 DF IN THE MORNING
  3. INSULIN [Concomitant]
     Dosage: UNK,UNK
  4. MELATONIN [Concomitant]
     Dosage: UNK,UNK

REACTIONS (7)
  - DECREASED APPETITE [None]
  - DRUG EFFECT DECREASED [None]
  - DRUG EXPOSURE DURING PREGNANCY [None]
  - HEADACHE [None]
  - IMPAIRED DRIVING ABILITY [None]
  - REBOUND EFFECT [None]
  - WEIGHT DECREASED [None]
